FAERS Safety Report 14683681 (Version 2)
Quarter: 2018Q2

REPORT INFORMATION
  Report Type: Report from Study
  Country: BR (occurrence: BR)
  Receive Date: 20180327
  Receipt Date: 20180415
  Transmission Date: 20180711
  Serious: Yes (Life-Threatening)
  Sender: FDA-Public Use
  Company Number: PHHY2018BR052969

PATIENT
  Sex: Female

DRUGS (1)
  1. ACLASTA [Suspect]
     Active Substance: ZOLEDRONIC ACID
     Indication: OSTEOPOROSIS
     Dosage: 1 DF (5 MG/100 ML), Q12MO
     Route: 042

REACTIONS (7)
  - Asthenia [Unknown]
  - Mobility decreased [Unknown]
  - Accident [Unknown]
  - Hypophagia [Unknown]
  - Weight decreased [Unknown]
  - Vomiting [Unknown]
  - Speech disorder [Unknown]
